FAERS Safety Report 9324170 (Version 1)
Quarter: 2013Q2

REPORT INFORMATION
  Report Type: Spontaneous
  Country: US (occurrence: US)
  Receive Date: 20130603
  Receipt Date: 20130603
  Transmission Date: 20140414
  Serious: No
  Sender: FDA-Public Use
  Company Number: US-ROXANE LABORATORIES, INC.-2013-RO-00857RO

PATIENT
  Age: 75 Year
  Sex: Female

DRUGS (1)
  1. VALACYCLOVIR HYDROCHLORIDE [Suspect]
     Indication: HERPES VIRUS INFECTION
     Dosage: 1000 MG
     Route: 048
     Dates: start: 20130523, end: 20130524

REACTIONS (1)
  - Abdominal pain upper [Recovered/Resolved]
